FAERS Safety Report 5321049-0 (Version None)
Quarter: 2007Q2

REPORT INFORMATION
  Report Type: 
  Country: None (occurrence: None)
  Receive Date: 20070510
  Receipt Date: 20070502
  Transmission Date: 20071010
  Serious: Yes (Hospitalization, Other)
  Sender: FDA-Public Use
  Company Number: US-JNJFOC-20070106059

PATIENT
  Sex: Male
  Weight: 70.31 kg

DRUGS (2)
  1. REMICADE [Suspect]
     Indication: CROHN'S DISEASE
     Route: 042
  2. 6MP [Concomitant]
     Indication: CROHN'S DISEASE

REACTIONS (2)
  - CARDIAC VALVE DISEASE [None]
  - TOOTH ABSCESS [None]
